FAERS Safety Report 7851642-2 (Version None)
Quarter: 2011Q4

REPORT INFORMATION
  Report Type: 
  Country: None (occurrence: None)
  Receive Date: 20111026
  Receipt Date: 20111017
  Transmission Date: 20120403
  Serious: Yes (Hospitalization, Disabling)
  Sender: FDA-Public Use
  Company Number: PHHY2011JP91994

PATIENT
  Sex: Female
  Weight: 42 kg

DRUGS (4)
  1. CEPHADOL [Concomitant]
     Dosage: 75 MG, UNK
     Route: 048
  2. GLAKAY [Concomitant]
     Dosage: 45 MG, UNK
     Route: 048
  3. AMLODIPINE BESYLATE/VALSARTAN [Suspect]
     Indication: HYPERTENSION
     Dosage: 1 DF, DAILY
     Route: 048
     Dates: start: 20100621, end: 20101007
  4. PLATIBIT [Concomitant]
     Dosage: 1 UG, UNK
     Route: 048

REACTIONS (3)
  - CEREBRAL HAEMORRHAGE [None]
  - SPEECH DISORDER [None]
  - FALL [None]
